FAERS Safety Report 16363216 (Version 1)
Quarter: 2019Q3

REPORT INFORMATION
  Report Type: Spontaneous
  Country: US (occurrence: US)
  Receive Date: 20190527
  Receipt Date: 20190527
  Transmission Date: 20191004
  Serious: Yes (Hospitalization)
  Sender: FDA-Public Use
  Company Number: None

PATIENT
  Age: 65 Year
  Sex: Female
  Weight: 101.25 kg

DRUGS (17)
  1. XELJANZ XR [Suspect]
     Active Substance: TOFACITINIB CITRATE
     Indication: RHEUMATOID ARTHRITIS
     Route: 048
     Dates: start: 20181211, end: 20190520
  2. ATENOLOL 100MG [Concomitant]
     Active Substance: ATENOLOL
     Dates: start: 20060502
  3. PREDNISONE 1MG [Concomitant]
     Dates: start: 20130610
  4. ANASTROZOLE 1MG [Concomitant]
     Active Substance: ANASTROZOLE
     Dates: start: 20150729
  5. ASPIRIN 81MG [Concomitant]
     Active Substance: ASPIRIN
     Dates: start: 20090310
  6. OMEPRAZOLE 40MG [Concomitant]
     Active Substance: OMEPRAZOLE
     Dates: start: 20081003
  7. METFORMIN 500MG [Concomitant]
     Active Substance: METFORMIN HYDROCHLORIDE
     Dates: start: 20090310
  8. LIPITOR 80MG [Concomitant]
     Dates: start: 20090615
  9. LORAZEPAM 1MG [Concomitant]
     Active Substance: LORAZEPAM
     Dates: start: 20170106
  10. FOLIC ACID 1MG [Concomitant]
     Active Substance: FOLIC ACID
     Dates: start: 20130102
  11. DULOXETINE 60MG [Concomitant]
     Active Substance: DULOXETINE
     Dates: start: 20170329
  12. ALDACTAZIDE 25MG [Concomitant]
     Dates: start: 20060502
  13. AMLODIPINE [Concomitant]
     Active Substance: AMLODIPINE BESYLATE
     Dates: start: 20111018
  14. HYDROCODONE 5MG-APAP 325MG [Concomitant]
     Dates: start: 20140303
  15. LOSARTAN 100MG [Concomitant]
     Active Substance: LOSARTAN
     Dates: start: 20170508
  16. IBUPROFEN 800MG [Concomitant]
     Active Substance: IBUPROFEN
     Dates: start: 20171227
  17. LEUCOVORIN 5MG [Concomitant]
     Active Substance: LEUCOVORIN
     Dates: start: 20181112

REACTIONS (2)
  - Dyspnoea [None]
  - Oedema peripheral [None]

NARRATIVE: CASE EVENT DATE: 20190520
